FAERS Safety Report 10378515 (Version 1)
Quarter: 2014Q3

REPORT INFORMATION
  Report Type: Spontaneous
  Country: TR (occurrence: TR)
  Receive Date: 20140812
  Receipt Date: 20140812
  Transmission Date: 20150326
  Serious: Yes (Other)
  Sender: FDA-Public Use
  Company Number: TR-SA-2014SA106240

PATIENT
  Age: 36 Year
  Sex: Female
  Weight: 51 kg

DRUGS (3)
  1. CLEXANE [Suspect]
     Active Substance: ENOXAPARIN SODIUM
     Indication: COAGULOPATHY
     Dosage: DOSE AND FREQ 1X1?FORM PREFILLED SYRINGE
     Route: 058
     Dates: start: 20140717, end: 20140726
  2. ASPIRIN. [Suspect]
     Active Substance: ASPIRIN
     Indication: COAGULOPATHY
     Dosage: 1X1 FREQ DOSE
     Route: 048
     Dates: start: 20140707, end: 20140726
  3. FOLBIOL [Suspect]
     Active Substance: FOLIC ACID
     Indication: PRODUCT USED FOR UNKNOWN INDICATION
     Dosage: 1X1 DOSE FREQUENCY
     Route: 048
     Dates: start: 2014, end: 20140726

REACTIONS (2)
  - Exposure during pregnancy [Unknown]
  - Abortion spontaneous [Unknown]

NARRATIVE: CASE EVENT DATE: 20140726
